FAERS Safety Report 8818289 (Version 2)
Quarter: 2012Q4

REPORT INFORMATION
  Report Type: 
  Country: JP (occurrence: JP)
  Receive Date: 20121001
  Receipt Date: 20121005
  Transmission Date: 20130627
  Serious: Yes (Death)
  Sender: FDA-Public Use
  Company Number: JP-ROCHE-1136893

PATIENT
  Age: 54 Year
  Sex: Male

DRUGS (10)
  1. AVASTIN [Suspect]
     Indication: RECTAL CANCER METASTATIC
     Dosage: Dosage is uncertain.
     Route: 041
  2. AVASTIN [Suspect]
     Indication: RECTAL CANCER METASTATIC
     Dosage: Dosage is uncertain.
     Route: 041
  3. ELPLAT [Concomitant]
     Indication: RECTAL CANCER METASTATIC
     Dosage: Dosage is uncertain.
     Route: 041
  4. LEVOFOLINATE [Concomitant]
     Indication: RECTAL CANCER METASTATIC
     Dosage: Dosage is uncertain.
     Route: 041
  5. LEVOFOLINATE [Concomitant]
     Indication: RECTAL CANCER METASTATIC
     Dosage: Dosage is uncertain.
     Route: 041
  6. 5-FU [Concomitant]
     Indication: RECTAL CANCER METASTATIC
     Dosage: Dosage is uncertain.
     Route: 040
  7. 5-FU [Concomitant]
     Indication: RECTAL CANCER METASTATIC
     Dosage: Dosage is uncertain.
     Route: 041
  8. 5-FU [Concomitant]
     Indication: RECTAL CANCER METASTATIC
     Dosage: Dosage is uncertain.
     Route: 040
  9. 5-FU [Concomitant]
     Indication: RECTAL CANCER METASTATIC
     Dosage: Dosage is uncertain.
     Route: 041
  10. IRINOTECAN HYDROCHLORIDE [Concomitant]
     Indication: RECTAL CANCER METASTATIC
     Dosage: Drug reported as : IRINOTECAN HYDROCHLORIDE HYDRATE, Dosage is uncertain.
     Route: 041

REACTIONS (1)
  - Interstitial lung disease [Fatal]
